FAERS Safety Report 8981156 (Version 2)
Quarter: 2012Q4

REPORT INFORMATION
  Report Type: Report from Study
  Country: RO (occurrence: RO)
  Receive Date: 20121221
  Receipt Date: 20121227
  Transmission Date: 20130627
  Serious: Yes (Hospitalization)
  Sender: FDA-Public Use
  Company Number: RO-GLAXOSMITHKLINE-B0791162C

PATIENT
  Age: 69 Year
  Sex: Male
  Weight: 102 kg

DRUGS (15)
  1. FLUTICASONE FUROATE [Suspect]
     Indication: CHRONIC OBSTRUCTIVE PULMONARY DISEASE
  2. PENTOXIFYLLINE [Concomitant]
     Indication: NEUROPATHY PERIPHERAL
     Dosage: 400MG Twice per day
     Route: 048
     Dates: start: 20120823
  3. NEBILET [Concomitant]
     Indication: CORONARY ARTERY DISEASE
     Dosage: 2.5MG Twice per day
     Route: 048
     Dates: start: 20120823
  4. IVABRADINE HYDROCHLORIDE [Concomitant]
     Indication: CORONARY ARTERY DISEASE
     Dosage: 5MG Per day
     Route: 048
     Dates: start: 20120823
  5. ATACAND [Concomitant]
     Indication: HYPERTENSION
     Dosage: 4MG Twice per day
     Route: 048
     Dates: start: 20120823
  6. AFLEN [Concomitant]
     Indication: CORONARY ARTERY DISEASE
     Dosage: 300MG Per day
     Route: 048
     Dates: start: 20120823
  7. GLIBOMET [Concomitant]
     Indication: DIABETES MELLITUS
     Dosage: 400MG Three times per day
     Route: 048
     Dates: start: 2008
  8. PREDUCTAL [Concomitant]
     Indication: CORONARY ARTERY DISEASE
     Dosage: 35MG Twice per day
     Route: 048
     Dates: start: 20120823
  9. SORTIS [Concomitant]
     Indication: CORONARY ARTERY DISEASE
     Dosage: 40MG Per day
     Route: 048
     Dates: start: 20120823
  10. LORAZEPAM [Concomitant]
     Indication: CORONARY ARTERY DISEASE
     Route: 048
     Dates: start: 20120823
  11. CLOPIDOGREL BISULFATE [Concomitant]
     Indication: MYOCARDIAL INFARCTION
     Dosage: 75MG Per day
     Route: 048
     Dates: start: 20110829
  12. MILGAMMA N [Concomitant]
     Indication: NEUROPATHY PERIPHERAL
     Dosage: 100MG Twice per day
     Route: 048
     Dates: start: 2008
  13. HYDROCORTISONE HEMISUCCINATE [Concomitant]
     Indication: CHRONIC OBSTRUCTIVE PULMONARY DISEASE
     Dosage: 100MG Twice per day
     Route: 042
     Dates: start: 20121129, end: 20121210
  14. CIPROFLOXACIN [Concomitant]
     Indication: CHRONIC OBSTRUCTIVE PULMONARY DISEASE
     Dosage: 500MG Twice per day
     Route: 048
     Dates: start: 20121129, end: 20121206
  15. PREDNISONE [Concomitant]
     Indication: CHRONIC OBSTRUCTIVE PULMONARY DISEASE
     Dosage: 15MG Twice per day
     Route: 048
     Dates: start: 20121129, end: 20121213

REACTIONS (1)
  - Pneumonia [Recovering/Resolving]
